FAERS Safety Report 16916548 (Version 1)
Quarter: 2019Q4

REPORT INFORMATION
  Report Type: Report from Study
  Country: None (occurrence: CA)
  Receive Date: 20191014
  Receipt Date: 20191014
  Transmission Date: 20200122
  Serious: Yes (Hospitalization)
  Sender: FDA-Public Use
  Company Number: CA-ABBVIE-19K-028-2934568-00

PATIENT
  Age: 33 Year
  Sex: Male
  Weight: 130.75 kg

DRUGS (1)
  1. HUMIRA [Suspect]
     Active Substance: ADALIMUMAB
     Indication: CROHN^S DISEASE
     Route: 058
     Dates: start: 20190704

REACTIONS (8)
  - Kidney infection [Recovered/Resolved]
  - Urinary tract infection [Unknown]
  - Pyrexia [Recovering/Resolving]
  - Acute kidney injury [Unknown]
  - Immune system disorder [Not Recovered/Not Resolved]
  - Diabetes mellitus [Unknown]
  - Cystitis [Recovering/Resolving]
  - Influenza [Recovering/Resolving]

NARRATIVE: CASE EVENT DATE: 2019
